FAERS Safety Report 9537875 (Version 1)
Quarter: 2013Q3

REPORT INFORMATION
  Report Type: Spontaneous
  Country: US (occurrence: US)
  Receive Date: 20130919
  Receipt Date: 20130919
  Transmission Date: 20140515
  Serious: Yes (Other)
  Sender: FDA-Public Use
  Company Number: CHPA2013US014290

PATIENT
  Age: 59 Year
  Sex: Female

DRUGS (3)
  1. MAALOX ANTACID TABLETS - UNKNOWN [Suspect]
     Dosage: UNK, UNK
     Route: 048
  2. NEXIUM//ESOMEPRAZOLE SODIUM [Concomitant]
  3. ZANTAC [Concomitant]

REACTIONS (2)
  - Concussion [Unknown]
  - Fall [Unknown]
